FAERS Safety Report 8560864-7 (Version None)
Quarter: 2012Q3

REPORT INFORMATION
  Report Type: 
  Country: None (occurrence: None)
  Receive Date: 20120727
  Receipt Date: 20120727
  Transmission Date: 20120928
  Serious: Yes (Hospitalization)
  Sender: FDA-Public Use
  Company Number: None

PATIENT
  Age: 71 Year
  Sex: Female
  Weight: 70.5 kg

DRUGS (16)
  1. IBUPROFEN [Suspect]
     Indication: PAIN
     Dosage: 400MG TID PO
     Route: 048
  2. PREDNISONE TAB [Suspect]
     Indication: ARTHRITIS
     Dosage: 30MG DAILY PO
     Route: 048
  3. NORCO [Concomitant]
  4. VITAMIN [Concomitant]
  5. LIDODERM [Concomitant]
  6. FLEXERIL [Concomitant]
  7. VIT D3 [Concomitant]
  8. AMLODIPINE [Concomitant]
  9. TRAMADOL HCL [Concomitant]
  10. CAPTOPRIL [Concomitant]
  11. PROTONIX [Concomitant]
  12. GABAPENTIN [Concomitant]
  13. LOVENOX [Suspect]
     Dosage: ? DAILY SQ
     Route: 058
  14. SULINDAC [Suspect]
     Indication: ARTHRITIS
     Dosage: 150 MG BID PO RECENT
     Route: 048
  15. HYDROCHLOROTHIAZIDE [Concomitant]
  16. FISH OIL [Concomitant]

REACTIONS (5)
  - GASTROINTESTINAL HAEMORRHAGE [None]
  - HAEMATOCRIT DECREASED [None]
  - HELICOBACTER TEST POSITIVE [None]
  - HAEMOGLOBIN DECREASED [None]
  - GASTRIC ULCER [None]
